FAERS Safety Report 21619248 (Version 2)
Quarter: 2023Q1

REPORT INFORMATION
  Report Type: Report from Study
  Country: US (occurrence: US)
  Receive Date: 20221120
  Receipt Date: 20230203
  Transmission Date: 20230417
  Serious: No
  Sender: FDA-Public Use
  Company Number: US-ABBVIE-4188251

PATIENT
  Age: 47 Year
  Sex: Male
  Weight: 120 kg

DRUGS (4)
  1. HUMIRA [Suspect]
     Active Substance: ADALIMUMAB
     Indication: Psoriatic arthropathy
     Dosage: FORM STRENGTH: 40 MILLIGRAM, START DATE: NOV 2022
     Route: 058
  2. HUMIRA [Suspect]
     Active Substance: ADALIMUMAB
     Indication: Psoriasis
     Dosage: FORM STRENGTH: 40 MILLIGRAM
     Route: 058
     Dates: end: 202201
  3. HUMIRA [Suspect]
     Active Substance: ADALIMUMAB
     Dosage: MISSED DOSE, FORM STRENGTH: 40 MILLIGRAM, PRODUCT START DATE: SEP 2022
     Route: 058
     Dates: end: 20221102
  4. SERTRALINE [Concomitant]
     Active Substance: SERTRALINE HYDROCHLORIDE
     Indication: Anxiety
     Route: 065

REACTIONS (6)
  - Gait disturbance [Unknown]
  - Pain [Recovered/Resolved]
  - Mobility decreased [Recovered/Resolved]
  - Inflammation [Recovered/Resolved]
  - Joint swelling [Recovered/Resolved]
  - Swelling [Recovered/Resolved]

NARRATIVE: CASE EVENT DATE: 20220101
